FAERS Safety Report 5994741-2 (Version None)
Quarter: 2008Q4

REPORT INFORMATION
  Report Type: 
  Country: None (occurrence: None)
  Receive Date: 20081210
  Receipt Date: 20081125
  Transmission Date: 20090506
  Serious: Yes (Other)
  Sender: FDA-Public Use
  Company Number: 2008S1021167

PATIENT
  Age: 76 Year
  Sex: Male

DRUGS (9)
  1. AMLODIPINE [Suspect]
     Indication: DRUG USE FOR UNKNOWN INDICATION
     Dosage: 5 MG;DAILY;
  2. OMEPRAZOLE [Suspect]
     Dosage: 20 MG;DAILY;
  3. RAMIPRIL [Suspect]
     Dosage: 2.5 MG; DAILY;
  4. SERETIDE (SERETIDE 01420901/) (1 DF) [Suspect]
     Indication: ASTHMA
     Dosage: TWICE A DAY; INHALATION
     Route: 055
     Dates: start: 20051208
  5. SIMVASTATIN [Suspect]
     Dosage: 20 MG;DAILY;
  6. TAMSULOSIN HCL [Suspect]
     Dosage: 500 MG;DAILY;
  7. THEOPHYLLINE [Suspect]
     Dosage: 300 MG;DAILY;
  8. TIOTROPIUM BROMIDE (TIOTROPIUM BROMIDE) (1 DF) [Suspect]
     Dosage: 1 DF; DAILY
  9. VENTOLIN [Suspect]
     Indication: ASTHMA
     Dosage: INHALATION
     Route: 055

REACTIONS (3)
  - ASTHMA [None]
  - MEMORY IMPAIRMENT [None]
  - TRANSIENT ISCHAEMIC ATTACK [None]
